FAERS Safety Report 4660310-X (Version None)
Quarter: 2005Q2

REPORT INFORMATION
  Report Type: 
  Country: None (occurrence: None)
  Receive Date: 20050511
  Receipt Date: 20050511
  Transmission Date: 20051028
  Serious: Yes (Life-Threatening, Hospitalization)
  Sender: FDA-Public Use
  Company Number: None

PATIENT
  Age: 37 Year
  Sex: Female
  Weight: 72.1219 kg

DRUGS (8)
  1. IRON DEXTRAN [Suspect]
     Indication: IRON DEFICIENCY ANAEMIA
     Dosage: 25MG IV X 1
     Route: 042
     Dates: start: 20050329
  2. TYLENOL W/ CODEINE NO. 3 [Concomitant]
  3. ZOLOFT [Concomitant]
  4. VITAMIN AND MINERAL PRENATAL SUPPLEMENT W/ FOLIC ACID CAP [Concomitant]
  5. AMBIEN [Concomitant]
  6. DOCUSATE [Concomitant]
  7. MILK OF MAG [Concomitant]
  8. ANUSOL [Concomitant]

REACTIONS (2)
  - CARDIO-RESPIRATORY ARREST [None]
  - DYSPNOEA [None]
